FAERS Safety Report 6415643-3 (Version None)
Quarter: 2009Q4

REPORT INFORMATION
  Report Type: 
  Country: None (occurrence: None)
  Receive Date: 20091027
  Receipt Date: 20091022
  Transmission Date: 20100525
  Serious: Yes (Death)
  Sender: FDA-Public Use
  Company Number: US-CELGENEUS-163-21880-09090965

PATIENT
  Sex: Female

DRUGS (2)
  1. REVLIMID [Suspect]
     Indication: MYELOFIBROSIS
     Route: 048
     Dates: start: 20090820, end: 20090908
  2. REVLIMID [Suspect]
     Route: 048
     Dates: start: 20070301, end: 20070101

REACTIONS (1)
  - NEOPLASM PROGRESSION [None]
